FAERS Safety Report 7903816-X (Version None)
Quarter: 2011Q4

REPORT INFORMATION
  Report Type: 
  Country: None (occurrence: None)
  Receive Date: 20111109
  Receipt Date: 20111028
  Transmission Date: 20120403
  Serious: Yes (Hospitalization)
  Sender: FDA-Public Use
  Company Number: US-SANOFI-AVENTIS-2011SA071565

PATIENT
  Age: 51 Year
  Sex: Female

DRUGS (22)
  1. CLONAZEPAM [Concomitant]
  2. SIMVASTATIN [Concomitant]
  3. HYDROCODONE BITARTRATE + ACETAMINOPHEN [Concomitant]
  4. TRAZODONE HYDROCHLORIDE [Concomitant]
  5. ZIPRASIDONE HYDROCHLORIDE [Concomitant]
  6. ESOMEPRAZOLE [Concomitant]
  7. LANTUS [Suspect]
     Route: 058
  8. LANTUS [Suspect]
     Route: 058
  9. ZIPRASIDONE HYDROCHLORIDE [Concomitant]
     Dosage: OVERDOSE
  10. LANTUS [Suspect]
     Dosage: OVERDOSE; INJECTED WITH 9 LANTUS SOLOSTAR PEN DOSE:2700 UNIT(S)
     Route: 058
  11. ACETYLSALICYLIC ACID SRT [Concomitant]
  12. LANTUS [Suspect]
     Indication: SUICIDE ATTEMPT
     Dosage: OVERDOSE; INJECTED WITH 9 LANTUS SOLOSTAR PEN DOSE:2700 UNIT(S)
     Route: 058
  13. LANTUS [Suspect]
     Route: 058
  14. BENZTROPINE MESYLATE [Concomitant]
  15. TRAZODONE HYDROCHLORIDE [Concomitant]
  16. TRAZODONE HYDROCHLORIDE [Concomitant]
  17. LANTUS [Suspect]
     Route: 058
  18. SOLOSTAR [Suspect]
     Indication: DEVICE THERAPY
     Dosage: INJECTED WITH 9 LANTUS SOLOSTAR PEN
  19. CLONAZEPAM [Concomitant]
     Dosage: OVERDOSE
  20. CLONAZEPAM [Concomitant]
  21. VENLAFAXINE [Concomitant]
  22. ZIPRASIDONE HYDROCHLORIDE [Concomitant]

REACTIONS (6)
  - HYPOGLYCAEMIA [None]
  - SUICIDE ATTEMPT [None]
  - DIZZINESS [None]
  - INTENTIONAL OVERDOSE [None]
  - HYPOKALAEMIA [None]
  - NAUSEA [None]
